FAERS Safety Report 23962975 (Version 1)
Quarter: 2024Q2

REPORT INFORMATION
  Report Type: Spontaneous
  Country: US (occurrence: None)
  Receive Date: 20240611
  Receipt Date: 20240611
  Transmission Date: 20240716
  Serious: Yes (Hospitalization)
  Sender: FDA-Public Use
  Company Number: None

PATIENT
  Sex: Male

DRUGS (1)
  1. IMATINIB MESYLATE [Suspect]
     Active Substance: IMATINIB MESYLATE
     Indication: Soft tissue sarcoma
     Dosage: 400MG DAILY ORAL
     Route: 048
     Dates: start: 202009

REACTIONS (3)
  - Intra-abdominal haemorrhage [None]
  - Intestinal obstruction [None]
  - Therapy cessation [None]
